FAERS Safety Report 16532097 (Version 2)
Quarter: 2019Q3

REPORT INFORMATION
  Report Type: Spontaneous
  Country: DE (occurrence: DE)
  Receive Date: 20190704
  Receipt Date: 20190912
  Transmission Date: 20191004
  Serious: Yes (Congenital Anomaly, Other)
  Sender: FDA-Public Use
  Company Number: DE-AUROBINDO-AUR-APL-2019-037309

PATIENT

DRUGS (6)
  1. MERIEUX TETAVAX [Concomitant]
     Indication: IMMUNISATION
     Dosage: UNK
     Route: 064
     Dates: start: 20110421, end: 20110421
  2. AMOXCLAV [Concomitant]
     Active Substance: AMOXICILLIN\CLAVULANIC ACID
     Indication: ABSCESS
     Dosage: 375[MG/D(3X125)]/1500[MG/D(3X500)]
     Route: 064
     Dates: start: 20110420, end: 20110427
  3. INSULIN [Concomitant]
     Active Substance: INSULIN NOS
     Indication: DIABETES MELLITUS
     Dosage: UNK
     Route: 064
     Dates: start: 20111016
  4. CETIRIZINE [Suspect]
     Active Substance: CETIRIZINE HYDROCHLORIDE
     Indication: SEASONAL ALLERGY
     Dosage: 10 MILLIGRAM, DAILY (DAILY DOSE:10 MG)
     Route: 064
     Dates: start: 20110308, end: 20110428
  5. OTRIVEN [Suspect]
     Active Substance: XYLOMETAZOLINE HYDROCHLORIDE
     Indication: RHINITIS ALLERGIC
     Dosage: UNK
     Route: 064
     Dates: start: 20110308, end: 20111214
  6. FEMIBION [Concomitant]
     Indication: PRODUCT USED FOR UNKNOWN INDICATION
     Dosage: UNK
     Route: 065

REACTIONS (2)
  - Anal atresia [Recovered/Resolved with Sequelae]
  - Maternal exposure during pregnancy [Recovered/Resolved]

NARRATIVE: CASE EVENT DATE: 20110308
